FAERS Safety Report 7016620-4 (Version None)
Quarter: 2010Q3

REPORT INFORMATION
  Report Type: 
  Country: None (occurrence: None)
  Receive Date: 20100927
  Receipt Date: 20100917
  Transmission Date: 20110219
  Serious: Yes (Hospitalization)
  Sender: FDA-Public Use
  Company Number: B0674192A

PATIENT
  Sex: Female

DRUGS (5)
  1. AUGMENTIN '125' [Suspect]
     Indication: PRODUCT USED FOR UNKNOWN INDICATION
     Route: 048
     Dates: start: 20100819, end: 20100830
  2. PERIACTIN [Concomitant]
     Dosage: 9.99ML PER DAY
     Route: 048
     Dates: start: 20100816, end: 20100830
  3. LEFTOSE [Concomitant]
     Dosage: 9.99ML PER DAY
     Route: 048
     Dates: start: 20100816, end: 20100830
  4. FLOMOX [Concomitant]
     Dosage: 99.9MG PER DAY
     Route: 048
     Dates: start: 20100816, end: 20100818
  5. BROACT [Concomitant]
     Dosage: 1G PER DAY
     Route: 042
     Dates: start: 20100816, end: 20100816

REACTIONS (3)
  - HEPATIC FUNCTION ABNORMAL [None]
  - PYREXIA [None]
  - RASH [None]
